FAERS Safety Report 15898299 (Version 1)
Quarter: 2019Q1

REPORT INFORMATION
  Report Type: Spontaneous
  Country: US (occurrence: US)
  Receive Date: 20190201
  Receipt Date: 20190201
  Transmission Date: 20190417
  Serious: No
  Sender: FDA-Public Use
  Company Number: US-DSJP-DSU-2017-149371

PATIENT

DRUGS (2)
  1. BENICAR [Suspect]
     Active Substance: OLMESARTAN MEDOXOMIL
     Indication: HYPERTENSION
     Dosage: 40 MG, QD
     Route: 048
     Dates: start: 20040101
  2. BENICAR [Suspect]
     Active Substance: OLMESARTAN MEDOXOMIL
     Dosage: BENICAR 40 MG HALF TABLET, QD
     Route: 048

REACTIONS (7)
  - Weight decreased [Recovered/Resolved]
  - Haemorrhoids [Not Recovered/Not Resolved]
  - Product administration error [Unknown]
  - Large intestine polyp [Recovered/Resolved]
  - Rectal polyp [Recovered/Resolved]
  - Hiatus hernia [Unknown]
  - Diverticulum intestinal [Recovering/Resolving]

NARRATIVE: CASE EVENT DATE: 20020821
